FAERS Safety Report 14454407 (Version 1)
Quarter: 2018Q1

REPORT INFORMATION
  Report Type: Spontaneous
  Country: FR (occurrence: FR)
  Receive Date: 20180129
  Receipt Date: 20180129
  Transmission Date: 20180509
  Serious: Yes (Hospitalization)
  Sender: FDA-Public Use
  Company Number: FR-TEVA-2018-FR-850312

PATIENT
  Age: 75 Year
  Sex: Male
  Weight: 60 kg

DRUGS (12)
  1. ASPEGIC [Concomitant]
     Active Substance: ASPIRIN DL-LYSINE
  2. NICORANDIL [Concomitant]
     Active Substance: NICORANDIL
  3. OMEPRAZOLE. [Concomitant]
     Active Substance: OMEPRAZOLE
  4. TRINITRINE (SOLUTION DE) [Concomitant]
  5. RAMIPRIL. [Concomitant]
     Active Substance: RAMIPRIL
  6. MONTELUKAST SODIQUE [Concomitant]
  7. BISOPROLOL (FUMARATE ACIDE DE) [Suspect]
     Active Substance: BISOPROLOL FUMARATE
     Indication: MYOCARDIAL ISCHAEMIA
     Route: 048
     Dates: end: 20170622
  8. FLUOXETINE (CHLORHYDRATE DE) [Concomitant]
     Active Substance: FLUOXETINE HYDROCHLORIDE
  9. ALFUZOSINE (CHLORHYDRATE D^) [Concomitant]
  10. LASILIX [Concomitant]
     Active Substance: FUROSEMIDE
  11. FLUVASTATINE BASE [Concomitant]
     Active Substance: FLUVASTATIN SODIUM
  12. ZOLPIDEM [Concomitant]
     Active Substance: ZOLPIDEM\ZOLPIDEM TARTRATE

REACTIONS (2)
  - Dermatitis exfoliative generalised [Recovering/Resolving]
  - Palmoplantar keratoderma [Recovering/Resolving]

NARRATIVE: CASE EVENT DATE: 201609
